FAERS Safety Report 24174815 (Version 1)
Quarter: 2024Q3

REPORT INFORMATION
  Report Type: Spontaneous
  Country: PL (occurrence: None)
  Receive Date: 20240805
  Receipt Date: 20240805
  Transmission Date: 20241016
  Serious: Yes (Death)
  Sender: ASTRAZENECA
  Company Number: 2024A176356

PATIENT
  Age: 58 Year
  Sex: Male

DRUGS (3)
  1. ONDEXXYA [Suspect]
     Active Substance: ANDEXANET ALFA
     Indication: Cerebral haematoma
     Dosage: 880.0MG ONCE/SINGLE ADMINISTRATION
     Route: 042
     Dates: start: 20240722
  2. MANNITOL [Concomitant]
     Active Substance: MANNITOL
  3. RIVAROXABAN [Concomitant]
     Active Substance: RIVAROXABAN
     Indication: Cerebral haematoma

REACTIONS (1)
  - Brain oedema [Fatal]

NARRATIVE: CASE EVENT DATE: 20240724
